FAERS Safety Report 5780189-2 (Version None)
Quarter: 2008Q2

REPORT INFORMATION
  Report Type: 
  Country: None (occurrence: None)
  Receive Date: 20080620
  Receipt Date: 20080610
  Transmission Date: 20081010
  Serious: No
  Sender: FDA-Public Use
  Company Number: BR-ROCHE-521268

PATIENT
  Sex: Female
  Weight: 70 kg

DRUGS (2)
  1. ROACUTAN [Suspect]
     Indication: ACNE
     Dosage: STRENGTH: 10-20 MG.
     Route: 048
     Dates: start: 20060501, end: 20070301
  2. CONTRACEPTIVE NOS [Concomitant]
     Indication: CONTRACEPTION
     Dosage: IN AUGUST 2007, ORAL CONTRACEPTIVE WAS FORGOTTEN.
     Route: 048

REACTIONS (1)
  - ABORTION SPONTANEOUS [None]
